FAERS Safety Report 16181494 (Version 1)
Quarter: 2019Q2

REPORT INFORMATION
  Report Type: Spontaneous
  Country: FR (occurrence: FR)
  Receive Date: 20190410
  Receipt Date: 20190410
  Transmission Date: 20190711
  Serious: Yes (Hospitalization)
  Sender: FDA-Public Use
  Company Number: FR-MYLANLABS-2019M1033028

PATIENT
  Age: 80 Year
  Sex: Male

DRUGS (6)
  1. ALLOPURINOL. [Concomitant]
     Active Substance: ALLOPURINOL
     Indication: HYPERURICAEMIA
     Dosage: 1-0-0
     Route: 048
     Dates: start: 201302
  2. KARDEGIC [Suspect]
     Active Substance: ASPIRIN DL-LYSINE
     Indication: CARDIAC VALVE PROSTHESIS USER
     Dosage: 75 MILLIGRAM, QD (1-0-0)
     Route: 048
     Dates: start: 2012
  3. TAHOR [Concomitant]
     Active Substance: ATORVASTATIN CALCIUM
     Indication: DYSLIPIDAEMIA
     Dosage: 1-0-0
     Route: 048
     Dates: start: 201302
  4. VANCOMYCIN [Suspect]
     Active Substance: VANCOMYCIN
     Indication: LUNG DISORDER
     Dosage: 375 MILLILITER, QD (1 FL-1-1)
     Route: 042
     Dates: start: 20180213, end: 20180228
  5. FORTUM                             /00559702/ [Interacting]
     Active Substance: CEFTAZIDIME
     Indication: LUNG DISORDER
     Dosage: 3 GRAM, QD (1 FL-1-1)
     Route: 042
     Dates: start: 20180213, end: 20180228
  6. COUMADINE [Suspect]
     Active Substance: WARFARIN SODIUM
     Indication: CARDIAC VALVE PROSTHESIS USER
     Dosage: 6 MILLIGRAM, QD (0-0-3)
     Route: 048
     Dates: start: 201701

REACTIONS (3)
  - Blood loss anaemia [Recovered/Resolved]
  - Rectal haemorrhage [Recovered/Resolved]
  - Drug interaction [Unknown]

NARRATIVE: CASE EVENT DATE: 20180217
